FAERS Safety Report 6717047-2 (Version None)
Quarter: 2010Q2

REPORT INFORMATION
  Report Type: 
  Country: None (occurrence: None)
  Receive Date: 20100510
  Receipt Date: 20100406
  Transmission Date: 20101027
  Serious: No
  Sender: FDA-Public Use
  Company Number: US-BAYER-201011089BCC

PATIENT
  Age: 54 Year
  Sex: Female
  Weight: 159 kg

DRUGS (6)
  1. ALEVE [Suspect]
     Indication: BACK PAIN
     Dosage: TOTAL DAILY DOSE: 220 MG  UNIT DOSE: 220 MG
     Route: 048
     Dates: start: 20100117, end: 20100117
  2. ALEVE [Suspect]
     Dosage: TOTAL DAILY DOSE: 660 MG  UNIT DOSE: 220 MG
     Route: 048
     Dates: start: 20100118
  3. SPIRIVA [Concomitant]
     Route: 045
  4. ADVAIR DISKUS 100/50 [Concomitant]
     Route: 045
  5. UNKNOWN INSULIN SHOTS [Concomitant]
     Route: 058
  6. UNKNOWN PILL FOR DIABETES [Concomitant]
     Route: 048

REACTIONS (2)
  - BACK PAIN [None]
  - HEADACHE [None]
